FAERS Safety Report 6728393-0 (Version None)
Quarter: 2010Q2

REPORT INFORMATION
  Report Type: 
  Country: None (occurrence: None)
  Receive Date: 20100512
  Receipt Date: 20100430
  Transmission Date: 20101027
  Serious: Yes (Other)
  Sender: FDA-Public Use
  Company Number: 7003403

PATIENT
  Age: 42 Year
  Sex: Female

DRUGS (1)
  1. REBIF [Suspect]
     Dosage: 44 MCG, 3 IN 1 WK, SUBCUTANEOUS
     Route: 058
     Dates: start: 20100406

REACTIONS (6)
  - ELECTROLYTE IMBALANCE [None]
  - HEADACHE [None]
  - HEART RATE INCREASED [None]
  - INITIAL INSOMNIA [None]
  - MIDDLE INSOMNIA [None]
  - VENTRICULAR EXTRASYSTOLES [None]
